FAERS Safety Report 12875513 (Version 1)
Quarter: 2016Q4

REPORT INFORMATION
  Report Type: Spontaneous
  Country: US (occurrence: US)
  Receive Date: 20161024
  Receipt Date: 20161024
  Transmission Date: 20170207
  Serious: No
  Sender: FDA-Public Use
  Company Number: US-GLENMARK PHARMACEUTICALS INC, USA.-2016GMK023718

PATIENT

DRUGS (1)
  1. LEVONORGESTREL/ETHINYL ESTRADIOL TABLETS US P [Suspect]
     Active Substance: ETHINYL ESTRADIOL\LEVONORGESTREL
     Indication: CONTRACEPTION
     Dosage: 1 DF, QD
     Route: 048
     Dates: start: 201605

REACTIONS (3)
  - Amenorrhoea [Unknown]
  - Menstruation irregular [Not Recovered/Not Resolved]
  - Headache [Recovered/Resolved]
